FAERS Safety Report 14562003 (Version 1)
Quarter: 2018Q1

REPORT INFORMATION
  Report Type: Spontaneous
  Country: US (occurrence: US)
  Receive Date: 20180221
  Receipt Date: 20180221
  Transmission Date: 20180509
  Serious: Yes (Other)
  Sender: FDA-Public Use
  Company Number: None

PATIENT
  Age: 62 Year
  Sex: Male
  Weight: 72 kg

DRUGS (7)
  1. BREO ELLIPTA [Concomitant]
     Active Substance: FLUTICASONE FUROATE\VILANTEROL TRIFENATATE
  2. INCRUSE ELLIPTA [Concomitant]
     Active Substance: UMECLIDINIUM BROMIDE
  3. BENZOCAINE. [Suspect]
     Active Substance: BENZOCAINE
     Indication: VOCAL CORD DYSFUNCTION
     Dosage: ?          QUANTITY:2 SPRAY(S);OTHER FREQUENCY:1 TIME;OTHER ROUTE:SPRAYED ON BACK OF THROAT?
     Dates: start: 20180220, end: 20180220
  4. ARNNUITY [Concomitant]
  5. ALBUTEROL. [Concomitant]
     Active Substance: ALBUTEROL
  6. AMLODOPINE [Concomitant]
     Active Substance: AMLODIPINE BESYLATE
  7. DIOVAN [Concomitant]
     Active Substance: VALSARTAN

REACTIONS (4)
  - Paraesthesia ear [None]
  - Paraesthesia oral [None]
  - Erythema [None]
  - Pruritus [None]

NARRATIVE: CASE EVENT DATE: 20180220
